FAERS Safety Report 6387009-6 (Version None)
Quarter: 2009Q4

REPORT INFORMATION
  Report Type: 
  Country: None (occurrence: None)
  Receive Date: 20091002
  Receipt Date: 20090925
  Transmission Date: 20100525
  Serious: Yes (Other)
  Sender: FDA-Public Use
  Company Number: US-ABBOTT-09P-163-0596111-00

PATIENT
  Age: 32 Year
  Sex: Male
  Weight: 109 kg

DRUGS (2)
  1. DEPACON [Suspect]
     Indication: PROPHYLAXIS
     Dosage: BOLUS: 15MG/KG/163 MG/100
     Route: 042
     Dates: start: 20090827, end: 20090827
  2. DEPACON [Suspect]
     Indication: NERVOUS SYSTEM DISORDER
     Dosage: MAINT: 100 MH/250 ML
     Route: 042
     Dates: start: 20090827, end: 20090827

REACTIONS (1)
  - ACIDOSIS [None]
